FAERS Safety Report 9490665 (Version 4)
Quarter: 2013Q3

REPORT INFORMATION
  Report Type: Spontaneous
  Country: US (occurrence: US)
  Receive Date: 20130830
  Receipt Date: 20130912
  Transmission Date: 20140515
  Serious: No
  Sender: FDA-Public Use
  Company Number: US-009507513-1207USA005500

PATIENT
  Sex: Female
  Weight: 95.51 kg

DRUGS (2)
  1. NEXPLANON [Suspect]
     Indication: CONTRACEPTION
     Dosage: UNK
     Route: 059
     Dates: start: 20120223
  2. NEXPLANON [Suspect]
     Dosage: 68 MG, UNK
     Route: 059
     Dates: start: 20120223, end: 2012

REACTIONS (8)
  - Device breakage [Recovered/Resolved]
  - Amenorrhoea [Not Recovered/Not Resolved]
  - Device breakage [Not Recovered/Not Resolved]
  - No adverse event [Unknown]
  - Abdominal distension [Unknown]
  - Weight loss poor [Unknown]
  - Anxiety [Unknown]
  - Weight increased [Recovered/Resolved]
